FAERS Safety Report 16719624 (Version 1)
Quarter: 2019Q3

REPORT INFORMATION
  Report Type: Spontaneous
  Country: US (occurrence: US)
  Receive Date: 20190820
  Receipt Date: 20190820
  Transmission Date: 20191005
  Serious: No
  Sender: FDA-Public Use
  Company Number: US-KYOWAKIRIN-2019BKK013125

PATIENT

DRUGS (2)
  1. SODIUM PHOSPHATE [Concomitant]
     Active Substance: SODIUM PHOSPHATE
     Indication: HYPOPHOSPHATAEMIA
     Dosage: UNK
     Route: 048
  2. CRYSVITA [Suspect]
     Active Substance: BUROSUMAB-TWZA
     Indication: OSTEOMALACIA
     Dosage: 70 MG, 1X/4 WEEKS
     Route: 065

REACTIONS (1)
  - Drug effective for unapproved indication [Unknown]
